FAERS Safety Report 23463983 (Version 1)
Quarter: 2024Q1

REPORT INFORMATION
  Report Type: Spontaneous
  Country: PL (occurrence: PL)
  Receive Date: 20240201
  Receipt Date: 20240201
  Transmission Date: 20240409
  Serious: Yes (Other)
  Sender: FDA-Public Use
  Company Number: PL-EPICPHARMA-PL-2024EPCLIT00193

PATIENT
  Age: 15 Year
  Sex: Female

DRUGS (1)
  1. LIDOCAINE HYDROCHLORIDE [Suspect]
     Active Substance: LIDOCAINE HYDROCHLORIDE
     Indication: Sexual abuse
     Route: 065

REACTIONS (4)
  - Memory impairment [Unknown]
  - Victim of sexual abuse [Unknown]
  - Vomiting [Unknown]
  - Intentional product misuse [Unknown]
